FAERS Safety Report 9689300 (Version 2)
Quarter: 2013Q4

REPORT INFORMATION
  Report Type: Spontaneous
  Country: US (occurrence: US)
  Receive Date: 20131114
  Receipt Date: 20131122
  Transmission Date: 20140711
  Serious: Yes (Other)
  Sender: FDA-Public Use
  Company Number: US-009507513-1311USA005513

PATIENT
  Age: 68 Year
  Sex: Male

DRUGS (2)
  1. SINGULAIR [Suspect]
     Indication: MULTIPLE ALLERGIES
     Dosage: 10 MG 1 DAILY
     Route: 048
  2. SINGULAIR [Suspect]
     Indication: RHINITIS ALLERGIC

REACTIONS (4)
  - Abdominal discomfort [Unknown]
  - Dyspnoea [Unknown]
  - Hot flush [Unknown]
  - Tremor [Unknown]
